FAERS Safety Report 10037752 (Version 1)
Quarter: 2014Q1

REPORT INFORMATION
  Report Type: Spontaneous
  Country: US (occurrence: None)
  Receive Date: 20140324
  Receipt Date: 20140324
  Transmission Date: 20141002
  Serious: Yes (Other)
  Sender: FDA-Public Use
  Company Number: 2014AP001994

PATIENT
  Age: 43 Year
  Sex: Male
  Weight: 92 kg

DRUGS (2)
  1. FERRIPROX (500 MG) [Suspect]
     Indication: THALASSAEMIA
     Route: 048
     Dates: start: 20131205
  2. FERRIPROX (500 MG) [Suspect]
     Indication: HAEMOCHROMATOSIS
     Route: 048
     Dates: start: 20131205

REACTIONS (3)
  - Vision blurred [None]
  - Diarrhoea [None]
  - Jaundice [None]
